FAERS Safety Report 8793780 (Version 4)
Quarter: 2013Q3

REPORT INFORMATION
  Report Type: Report from Study
  Country: JP (occurrence: JP)
  Receive Date: 20120917
  Receipt Date: 20130830
  Transmission Date: 20140515
  Serious: Yes (Other)
  Sender: FDA-Public Use
  Company Number: JP-VERTEX PHARMACEUTICAL INC.-AE-2012-010908

PATIENT
  Age: 43 Year
  Sex: Male

DRUGS (19)
  1. VX-950 (TELAPREVIR) [Suspect]
     Indication: CHRONIC HEPATITIS C
     Dosage: 2250 MG, QD
     Route: 048
     Dates: start: 20120601, end: 20120823
  2. RIBAVIRIN [Suspect]
     Indication: CHRONIC HEPATITIS C
     Dosage: 1000 MG, QD
     Route: 048
     Dates: start: 20120601, end: 20120626
  3. RIBAVIRIN [Suspect]
     Dosage: 800 MG, QD
     Route: 048
     Dates: start: 20120627, end: 20120710
  4. RIBAVIRIN [Suspect]
     Dosage: 600 MG, QD
     Route: 048
     Dates: start: 20120711, end: 20120717
  5. RIBAVIRIN [Suspect]
     Dosage: 400 MG, QD
     Route: 048
     Dates: start: 20120718, end: 20120828
  6. RIBAVIRIN [Suspect]
     Dosage: 200 MG, QD
     Route: 048
     Dates: start: 20120829, end: 20121009
  7. RIBAVIRIN [Suspect]
     Dosage: 400 MG, QD
     Route: 048
     Dates: start: 20121010, end: 20121023
  8. RIBAVIRIN [Suspect]
     Dosage: 600 MG, QD
     Route: 048
     Dates: start: 20121024, end: 20121114
  9. PEGINTERFERON ALFA-2B [Suspect]
     Indication: CHRONIC HEPATITIS C
     Dosage: 1.5 ?G/KG, QW
     Route: 058
     Dates: start: 20120601, end: 20120613
  10. PEGINTERFERON ALFA-2B [Suspect]
     Dosage: 1 ?G/KG, QW
     Route: 058
     Dates: start: 20120620, end: 20120620
  11. PEGINTERFERON ALFA-2B [Suspect]
     Dosage: 1.5 ?G/KG, QW
     Route: 058
     Dates: start: 20120627, end: 20120627
  12. PEGINTERFERON ALFA-2B [Suspect]
     Dosage: 1 ?G/KG, QW
     Route: 058
     Dates: start: 20120704, end: 20120711
  13. PEGINTERFERON ALFA-2B [Suspect]
     Dosage: 60 MCG/BODY, QW
     Route: 058
     Dates: start: 20120725, end: 20120725
  14. PEGINTERFERON ALFA-2B [Suspect]
     Dosage: 40 MCG/BODY, QW
     Route: 058
     Dates: start: 20120801, end: 20120808
  15. PEGINTERFERON ALFA-2B [Suspect]
     Dosage: 60 MCG/BODY, QW
     Route: 058
     Dates: start: 20120815, end: 20120815
  16. PEGINTERFERON ALFA-2B [Suspect]
     Dosage: 80 MCG/BODY
     Route: 058
     Dates: start: 20120822, end: 20120822
  17. PEGINTERFERON ALFA-2B [Suspect]
     Dosage: 60 MCG/ BODY, QW
     Route: 058
     Dates: start: 20120829, end: 20121114
  18. KENALOG [Concomitant]
     Dosage: UNK UNK, QD
     Route: 061
     Dates: start: 20120829, end: 20120905
  19. PARIET [Concomitant]
     Dosage: 10 MG, QD
     Route: 048
     Dates: start: 20120905

REACTIONS (1)
  - Neutrophil count decreased [Not Recovered/Not Resolved]
